FAERS Safety Report 23788238 (Version 2)
Quarter: 2024Q2

REPORT INFORMATION
  Report Type: Spontaneous
  Country: MX (occurrence: MX)
  Receive Date: 20240426
  Receipt Date: 20240516
  Transmission Date: 20240716
  Serious: Yes (Other)
  Sender: FDA-Public Use
  Company Number: MX-BAYER-2024A062410

PATIENT
  Age: 36 Year
  Sex: Male

DRUGS (1)
  1. FLANAX [Suspect]
     Active Substance: NAPROXEN SODIUM
     Indication: Myalgia
     Dosage: 1 DF
     Dates: start: 20240423, end: 20240423

REACTIONS (5)
  - Poisoning [Not Recovered/Not Resolved]
  - Urticaria [Not Recovered/Not Resolved]
  - Throat tightness [Not Recovered/Not Resolved]
  - Dyspnoea [Unknown]
  - Pruritus [None]

NARRATIVE: CASE EVENT DATE: 20240424
